FAERS Safety Report 14480131 (Version 2)
Quarter: 2018Q1

REPORT INFORMATION
  Report Type: Spontaneous
  Country: DE (occurrence: DE)
  Receive Date: 20180202
  Receipt Date: 20180312
  Transmission Date: 20180509
  Serious: Yes (Hospitalization)
  Sender: FDA-Public Use
  Company Number: DE-B.I. PHARMACEUTICALS,INC./RIDGEFIELD-2018-BI-005173

PATIENT
  Age: 63 Year
  Sex: Female

DRUGS (1)
  1. GILOTRIF [Suspect]
     Active Substance: AFATINIB
     Indication: LUNG NEOPLASM MALIGNANT
     Route: 065
     Dates: start: 201603

REACTIONS (11)
  - Feeling cold [Unknown]
  - Atypical pneumonia [Unknown]
  - Dyspnoea exertional [Unknown]
  - Cough [Unknown]
  - Croup infectious [Unknown]
  - Interstitial lung disease [Unknown]
  - Diarrhoea [Recovering/Resolving]
  - Urinary tract infection [Unknown]
  - Rash [Unknown]
  - Rash pustular [Unknown]
  - Pyrexia [Unknown]

NARRATIVE: CASE EVENT DATE: 201603
